FAERS Safety Report 11231286 (Version 1)
Quarter: 2015Q2

REPORT INFORMATION
  Report Type: Spontaneous
  Country: US (occurrence: None)
  Receive Date: 20150630
  Receipt Date: 20150630
  Transmission Date: 20150821
  Serious: Yes (Other)
  Sender: FDA-Public Use
  Company Number: None

PATIENT
  Age: 46 Year
  Sex: Female

DRUGS (1)
  1. KINERET [Suspect]
     Active Substance: ANAKINRA
     Indication: URTICARIA
     Route: 058
     Dates: start: 20150601, end: 20150618

REACTIONS (5)
  - Injection site erythema [None]
  - Injection site pain [None]
  - Injection site scar [None]
  - Injection site infection [None]
  - Injection site reaction [None]

NARRATIVE: CASE EVENT DATE: 20150618
